FAERS Safety Report 8920857 (Version 1)
Quarter: 2012Q4

REPORT INFORMATION
  Report Type: 
  Country: JP (occurrence: JP)
  Receive Date: 20121121
  Receipt Date: 20121121
  Transmission Date: 20130627
  Serious: Yes (Hospitalization)
  Sender: FDA-Public Use
  Company Number: JP-B.I. PHARMACEUTICALS,INC./RIDGEFIELD-2012-BI-00718NB

PATIENT
  Age: 54 Year
  Sex: Female
  Weight: 62.7 kg

DRUGS (8)
  1. SIFROL [Suspect]
     Indication: RESTLESS LEGS SYNDROME
     Dosage: 0.5 mg
     Route: 048
     Dates: start: 20121030, end: 20121030
  2. DOXAZOSIN [Concomitant]
     Dosage: 1 mg
     Route: 065
  3. DIOVAN [Concomitant]
     Dosage: 80 mg
     Route: 065
  4. NORVASC [Concomitant]
     Dosage: 5 mg
     Route: 065
  5. LANSORAL [Concomitant]
     Dosage: 15 mg
     Route: 065
  6. PHOSBLOCK [Concomitant]
     Dosage: 2250 mg
     Route: 065
  7. FOSRENOL [Concomitant]
     Dosage: 1500 mg
     Route: 065
  8. KINEX [Concomitant]
     Dosage: 150 mg
     Route: 065

REACTIONS (4)
  - Vomiting [Not Recovered/Not Resolved]
  - Pruritus [Not Recovered/Not Resolved]
  - Headache [Not Recovered/Not Resolved]
  - Irritability [Not Recovered/Not Resolved]
